FAERS Safety Report 7527461-3 (Version None)
Quarter: 2011Q2

REPORT INFORMATION
  Report Type: 
  Country: None (occurrence: None)
  Receive Date: 20110527
  Receipt Date: 20110519
  Transmission Date: 20111010
  Serious: Yes (Hospitalization)
  Sender: FDA-Public Use
  Company Number: UTC-007293

PATIENT
  Age: 27 Year
  Sex: Female
  Weight: 113.6 kg

DRUGS (3)
  1. TRACLEER [Concomitant]
  2. REVATIO [Concomitant]
  3. REMODULIN [Suspect]
     Dosage: SUBCUTANEOUS
     Route: 058
     Dates: start: 20010901

REACTIONS (2)
  - EAR INFECTION [None]
  - PNEUMONIA [None]
